FAERS Safety Report 9547707 (Version 1)
Quarter: 2013Q3

REPORT INFORMATION
  Report Type: Spontaneous
  Country: US (occurrence: None)
  Receive Date: 20130701
  Receipt Date: 20130701
  Transmission Date: 20140515
  Serious: Yes (Hospitalization)
  Sender: FDA-Public Use
  Company Number: 388955

PATIENT
  Age: 22 Year
  Sex: Male

DRUGS (4)
  1. PROPOFOL [Suspect]
     Indication: SEDATION
     Route: 042
     Dates: start: 20090924, end: 20090924
  2. LIDOCAINE [Concomitant]
  3. ASACOL [Concomitant]
  4. PREDINSONE [Concomitant]

REACTIONS (2)
  - Heart rate increased [None]
  - Pyrexia [None]
